FAERS Safety Report 7726340-6 (Version None)
Quarter: 2011Q3

REPORT INFORMATION
  Report Type: 
  Country: None (occurrence: None)
  Receive Date: 20110902
  Receipt Date: 20110827
  Transmission Date: 20111222
  Serious: Yes (Other)
  Sender: FDA-Public Use
  Company Number: US-SANOFI-AVENTIS-2011SA055313

PATIENT
  Sex: Female

DRUGS (6)
  1. PLAVIX [Suspect]
     Route: 048
     Dates: start: 20090101
  2. PROZAC [Concomitant]
  3. ASPIRIN [Concomitant]
  4. METOPROLOL [Concomitant]
  5. ZETIA [Concomitant]
  6. RAMIPRIL [Concomitant]

REACTIONS (2)
  - AGE-RELATED MACULAR DEGENERATION [None]
  - RETINAL NEOVASCULARISATION [None]
